FAERS Safety Report 23175671 (Version 1)
Quarter: 2023Q4

REPORT INFORMATION
  Report Type: Report from Study
  Country: US (occurrence: US)
  Receive Date: 20231113
  Receipt Date: 20231113
  Transmission Date: 20240109
  Serious: Yes (Other)
  Sender: FDA-Public Use
  Company Number: US-ABBVIE-5488563

PATIENT
  Age: 67 Year
  Sex: Female

DRUGS (1)
  1. HUMIRA [Suspect]
     Active Substance: ADALIMUMAB
     Indication: Rheumatoid arthritis
     Dosage: FORM STRENGTH: 40, CF
     Route: 058
     Dates: start: 20210223

REACTIONS (3)
  - Back disorder [Unknown]
  - Scoliosis [Unknown]
  - Nerve compression [Unknown]

NARRATIVE: CASE EVENT DATE: 20221107
